FAERS Safety Report 23609228 (Version 1)
Quarter: 2024Q1

REPORT INFORMATION
  Report Type: Spontaneous
  Country: BR (occurrence: BR)
  Receive Date: 20240308
  Receipt Date: 20240308
  Transmission Date: 20240410
  Serious: Yes (Other)
  Sender: FDA-Public Use
  Company Number: BR-TAKEDA-2024TUS020799

PATIENT
  Age: 73 Year
  Sex: Male
  Weight: 160 kg

DRUGS (10)
  1. MESALAMINE [Suspect]
     Active Substance: MESALAMINE
     Indication: Inflammation
     Dosage: UNK, QD
     Route: 054
  2. ENALAPRIL [Concomitant]
     Active Substance: ENALAPRIL
     Indication: Blood pressure measurement
     Dosage: UNK, Q12H
  3. AMITRIPTYLINE [Concomitant]
     Active Substance: AMITRIPTYLINE
     Dosage: 50 MILLIGRAM, QD
  4. SIMVASTATIN [Concomitant]
     Active Substance: SIMVASTATIN
     Indication: Blood cholesterol
     Dosage: UNK
  5. DOXAZOSIN MESYLATE [Concomitant]
     Active Substance: DOXAZOSIN MESYLATE
     Indication: Prostate cancer
     Dosage: UNK
  6. ALLOPURINOL [Concomitant]
     Active Substance: ALLOPURINOL
     Indication: Blood uric acid
     Dosage: UNK, QD
  7. DIPYRONE [Concomitant]
     Active Substance: DIPYRONE
     Indication: Pain
     Dosage: UNK
  8. DOLOTRAT [Concomitant]
     Indication: Blood calcium
     Dosage: UNK
  9. TORSILAX [Concomitant]
     Active Substance: ACETAMINOPHEN\CAFFEINE\CARISOPRODOL\DICLOFENAC
     Indication: Back pain
     Dosage: UNK
  10. BISACODYL [Concomitant]
     Active Substance: BISACODYL
     Indication: Abdominal discomfort
     Dosage: 5 MILLIGRAM

REACTIONS (6)
  - Adverse event [Unknown]
  - Malaise [Unknown]
  - Gastrointestinal neoplasm [Unknown]
  - Product physical consistency issue [Unknown]
  - Off label use [Unknown]
  - Poor quality product administered [Unknown]

NARRATIVE: CASE EVENT DATE: 20230101
